FAERS Safety Report 8213684-7 (Version None)
Quarter: 2012Q1

REPORT INFORMATION
  Report Type: 
  Country: None (occurrence: None)
  Receive Date: 20120315
  Receipt Date: 20120307
  Transmission Date: 20120608
  Serious: Yes (Hospitalization)
  Sender: FDA-Public Use
  Company Number: US-ASTRAZENECA-2012SE16059

PATIENT
  Sex: Male

DRUGS (2)
  1. CRESTOR [Suspect]
     Route: 048
  2. LIPITOR [Concomitant]

REACTIONS (3)
  - DRUG DOSE OMISSION [None]
  - ARRHYTHMIA [None]
  - BLOOD CREATINE PHOSPHOKINASE INCREASED [None]
